FAERS Safety Report 4314144-6 (Version None)
Quarter: 2004Q1

REPORT INFORMATION
  Report Type: 
  Country: None (occurrence: None)
  Receive Date: 20040308
  Receipt Date: 20040308
  Transmission Date: 20041129
  Serious: Yes (Hospitalization)
  Sender: FDA-Public Use
  Company Number: None

PATIENT
  Sex: Female
  Weight: 37.195 kg

DRUGS (3)
  1. FLUOROURACIL [Suspect]
     Indication: ANAL CANCER
     Dosage: 1340 MG IV DAILY/X4 DAY EACH CYCLE
     Dates: end: 20040226
  2. CISPLATIN [Suspect]
     Dosage: 100 MG IV (1 X EACH CYCLE)
     Route: 042
     Dates: start: 20040226
  3. RADIATION THERAPY [Suspect]
     Dates: start: 20040301

REACTIONS (3)
  - ABDOMINAL PAIN [None]
  - DEHYDRATION [None]
  - DIARRHOEA [None]
